FAERS Safety Report 8076223-X (Version None)
Quarter: 2012Q1

REPORT INFORMATION
  Report Type: 
  Country: None (occurrence: None)
  Receive Date: 20120127
  Receipt Date: 20120120
  Transmission Date: 20120608
  Serious: Yes (Other)
  Sender: FDA-Public Use
  Company Number: BR-PFIZER INC-2012017817

PATIENT
  Age: 25 Year
  Sex: Female
  Weight: 83 kg

DRUGS (1)
  1. NORDETTE-21 [Suspect]
     Indication: CONTRACEPTION
     Dosage: [LEVONORGESTREL 0.15MG] / [ETHINYL ESTRADIOL 0.03MG] (ONE TABLET) DAILY
     Route: 048
     Dates: start: 20110601

REACTIONS (4)
  - MIGRAINE [None]
  - URINARY TRACT INFECTION [None]
  - WEIGHT INCREASED [None]
  - HEADACHE [None]
